FAERS Safety Report 9841498 (Version 1)
Quarter: 2014Q1

REPORT INFORMATION
  Report Type: Spontaneous
  Country: JP (occurrence: JP)
  Receive Date: 20140124
  Receipt Date: 20140124
  Transmission Date: 20141002
  Serious: Yes (Hospitalization, Other)
  Sender: FDA-Public Use
  Company Number: JP-BAYER-2014-008453

PATIENT
  Age: 60 Year
  Sex: Male

DRUGS (3)
  1. ACETYLSALICYLIC ACID({=100 MG) [Suspect]
     Dosage: UNK
     Route: 048
  2. WARFARIN POTASSIUM [Interacting]
     Route: 048
  3. CLOPIDOGREL SULFATE [Interacting]
     Route: 048

REACTIONS (5)
  - Intracranial hypotension [Recovering/Resolving]
  - Subdural haematoma [None]
  - Labelled drug-drug interaction medication error [None]
  - Pachymeningitis [None]
  - Mallory-Weiss syndrome [None]
